FAERS Safety Report 7441886-6 (Version None)
Quarter: 2011Q2

REPORT INFORMATION
  Report Type: 
  Country: None (occurrence: None)
  Receive Date: 20110428
  Receipt Date: 20110214
  Transmission Date: 20111010
  Serious: No
  Sender: FDA-Public Use
  Company Number: US-ASTRAZENECA-2011SE08537

PATIENT
  Age: 61 Year
  Sex: Male
  Weight: 90.7 kg

DRUGS (5)
  1. DIFLUCAN [Concomitant]
  2. ZOMIG [Suspect]
     Indication: MIGRAINE
     Route: 048
     Dates: start: 20060101, end: 20110101
  3. RAW THYROID [Concomitant]
  4. ZOMIG [Suspect]
     Route: 048
     Dates: start: 20110101
  5. VALIUM [Concomitant]
     Dosage: AS REQUIRED

REACTIONS (4)
  - PAIN [None]
  - DRUG DISPENSING ERROR [None]
  - HEADACHE [None]
  - VOMITING [None]
